FAERS Safety Report 4532157-6 (Version None)
Quarter: 2004Q4

REPORT INFORMATION
  Report Type: 
  Country: None (occurrence: None)
  Receive Date: 20041217
  Receipt Date: 20041214
  Transmission Date: 20050328
  Serious: Yes (Other)
  Sender: FDA-Public Use
  Company Number: 200413382GDS

PATIENT
  Age: 82 Year
  Sex: Male

DRUGS (2)
  1. CIFLOX (CIPROFLOXAIN) [Suspect]
     Indication: URINARY TRACT INFECTION
  2. ANTI-DIABETICS [Concomitant]

REACTIONS (2)
  - ACUTE GENERALISED EXANTHEMATOUS PUSTULOSIS [None]
  - DERMATITIS EXFOLIATIVE [None]
